FAERS Safety Report 18596081 (Version 2)
Quarter: 2021Q2

REPORT INFORMATION
  Report Type: Spontaneous
  Country: US (occurrence: US)
  Receive Date: 20201209
  Receipt Date: 20210611
  Transmission Date: 20210717
  Serious: No
  Sender: FDA-Public Use
  Company Number: US-JNJFOC-20170425367

PATIENT
  Age: 76 Year
  Sex: Female
  Weight: 91 kg

DRUGS (8)
  1. NICOTINE. [Suspect]
     Active Substance: NICOTINE
     Route: 065
  2. NICOTINE. [Suspect]
     Active Substance: NICOTINE
     Route: 065
  3. NICOTINE. [Suspect]
     Active Substance: NICOTINE
     Route: 065
  4. NICOTINE. [Suspect]
     Active Substance: NICOTINE
     Route: 065
  5. NICOTINE. [Suspect]
     Active Substance: NICOTINE
     Indication: SMOKING CESSATION THERAPY
     Route: 065
     Dates: start: 2012
  6. NICOTINE. [Suspect]
     Active Substance: NICOTINE
     Route: 065
  7. NICOTINE. [Suspect]
     Active Substance: NICOTINE
     Route: 065
  8. NICOTINE. [Suspect]
     Active Substance: NICOTINE
     Route: 065

REACTIONS (5)
  - Poor quality product administered [Unknown]
  - Intentional product use issue [Unknown]
  - Fatigue [Unknown]
  - Product taste abnormal [Unknown]
  - Off label use [Unknown]

NARRATIVE: CASE EVENT DATE: 20170417
